FAERS Safety Report 4986741-6 (Version None)
Quarter: 2006Q2

REPORT INFORMATION
  Report Type: 
  Country: None (occurrence: None)
  Receive Date: 20060428
  Receipt Date: 20050601
  Transmission Date: 20061013
  Serious: Yes (Hospitalization, Other)
  Sender: FDA-Public Use
  Company Number: US-MERCK-0506USA00750

PATIENT
  Age: 65 Year
  Sex: Male
  Weight: 81 kg

DRUGS (9)
  1. VIOXX [Suspect]
     Indication: BACK PAIN
     Route: 048
     Dates: start: 19990101, end: 20040901
  2. LOPRESSOR [Concomitant]
     Route: 065
  3. PREVACID [Concomitant]
     Route: 065
  4. ZOLOFT [Concomitant]
     Route: 065
  5. LORTAB [Concomitant]
     Indication: BACK PAIN
     Route: 065
  6. SOMA [Concomitant]
     Route: 065
  7. NEURONTIN [Concomitant]
     Route: 065
  8. LIPITOR [Concomitant]
     Route: 065
  9. ELAVIL [Concomitant]
     Route: 048

REACTIONS (27)
  - ABDOMINAL HERNIA [None]
  - ANGINA UNSTABLE [None]
  - ASTHENIA [None]
  - BACK INJURY [None]
  - BLOOD CREATINE PHOSPHOKINASE INCREASED [None]
  - CHEST PAIN [None]
  - CONGENITAL CORONARY ARTERY MALFORMATION [None]
  - CORONARY ARTERY DISEASE [None]
  - DIZZINESS [None]
  - ERYTHEMA [None]
  - HYPERTENSION [None]
  - INCISION SITE COMPLICATION [None]
  - INCISION SITE ERYTHEMA [None]
  - ISCHAEMIA [None]
  - LEUKOCYTOSIS [None]
  - LOSS OF CONSCIOUSNESS [None]
  - MENTAL STATUS CHANGES [None]
  - MYOCARDIAL INFARCTION [None]
  - NEUROPATHY [None]
  - PERIPHERAL VASCULAR DISORDER [None]
  - PHARYNGITIS [None]
  - PNEUMOTHORAX [None]
  - REFUSAL OF TREATMENT BY PATIENT [None]
  - RESPIRATORY FAILURE [None]
  - SYNCOPE [None]
  - VENTRICULAR HYPERTROPHY [None]
  - WOUND INFECTION [None]
